FAERS Safety Report 22541308 (Version 4)
Quarter: 2025Q3

REPORT INFORMATION
  Report Type: Spontaneous
  Country: US (occurrence: US)
  Receive Date: 20230609
  Receipt Date: 20250901
  Transmission Date: 20251021
  Serious: No
  Sender: ELI LILLY AND COMPANY
  Company Number: US-ELI_LILLY_AND_COMPANY-US202306004514

PATIENT
  Age: 71 Year
  Sex: Female

DRUGS (3)
  1. VERZENIO [Suspect]
     Active Substance: ABEMACICLIB
     Indication: Breast cancer
     Route: 048
     Dates: start: 20230128
  2. VERZENIO [Suspect]
     Active Substance: ABEMACICLIB
     Route: 048
  3. VERZENIO [Suspect]
     Active Substance: ABEMACICLIB
     Dosage: 100 MG, BID
     Route: 048

REACTIONS (11)
  - Malaise [Recovered/Resolved]
  - Dyspnoea [Unknown]
  - White blood cell count abnormal [Unknown]
  - Nephrolithiasis [Recovered/Resolved]
  - Product dose omission issue [Unknown]
  - Drug intolerance [Unknown]
  - Upper respiratory tract infection [Recovered/Resolved]
  - Weight decreased [Unknown]
  - Diarrhoea [Unknown]
  - Nausea [Unknown]
  - Decreased appetite [Unknown]

NARRATIVE: CASE EVENT DATE: 20230530
